FAERS Safety Report 17328072 (Version 1)
Quarter: 2020Q1

REPORT INFORMATION
  Report Type: Report from Study
  Country: NL (occurrence: NL)
  Receive Date: 20200127
  Receipt Date: 20200127
  Transmission Date: 20200409
  Serious: Yes (Other)
  Sender: FDA-Public Use
  Company Number: NL-MYLANLABS-2020M1009432

PATIENT
  Age: 20 Year
  Sex: Male

DRUGS (4)
  1. PREDNISON [Concomitant]
     Active Substance: PREDNISONE
     Dosage: 5MG, VOLGENS SCHEMA
     Route: 048
     Dates: start: 20130820, end: 20131001
  2. ADALIMUMAB [Concomitant]
     Active Substance: ADALIMUMAB
     Dosage: 40MG, 1X/2W
     Route: 058
     Dates: start: 20130921, end: 20140714
  3. MERCAPTOPURINE. [Concomitant]
     Active Substance: MERCAPTOPURINE
     Dosage: 50MG, 1X/D
     Route: 048
     Dates: start: 20130820, end: 20130921
  4. AZATHIOPRINE. [Suspect]
     Active Substance: AZATHIOPRINE
     Indication: COLITIS ULCERATIVE
     Dosage: 50ONBEKEND, ONBEKEND
     Route: 065
     Dates: start: 20130101, end: 20130201

REACTIONS (1)
  - Hepatitis [Recovered/Resolved]

NARRATIVE: CASE EVENT DATE: 20130921
